FAERS Safety Report 20654429 (Version 1)
Quarter: 2022Q1

REPORT INFORMATION
  Report Type: Spontaneous
  Country: US (occurrence: None)
  Receive Date: 20220329
  Receipt Date: 20220329
  Transmission Date: 20220423
  Serious: Yes (Hospitalization, Other)
  Sender: FDA-Public Use
  Company Number: None

PATIENT
  Age: 66 Year
  Sex: Male
  Weight: 73.6 kg

DRUGS (4)
  1. CABOZANTINIB [Suspect]
     Active Substance: CABOZANTINIB
     Indication: Prostate cancer
     Dosage: FREQUENCY : DAILY;?
     Route: 048
     Dates: start: 20220308
  2. Senna/Colace [Concomitant]
  3. VITAMIN C [Concomitant]
     Active Substance: ASCORBIC ACID
  4. Dovenin [Concomitant]

REACTIONS (2)
  - Wound dehiscence [None]
  - Procedural site reaction [None]

NARRATIVE: CASE EVENT DATE: 20220325
